FAERS Safety Report 8850301 (Version 1)
Quarter: 2012Q4

REPORT INFORMATION
  Report Type: 
  Country: GB (occurrence: GB)
  Receive Date: 20121019
  Receipt Date: 20121019
  Transmission Date: 20130627
  Serious: Yes (Other)
  Sender: FDA-Public Use
  Company Number: GB-PFIZER INC-2012254586

PATIENT
  Age: 31 Year
  Sex: Male

DRUGS (1)
  1. VIAGRA [Suspect]
     Dosage: started 4-5 years ago

REACTIONS (3)
  - Off label use [Unknown]
  - Drug dependence [Unknown]
  - Overconfidence [Unknown]
